FAERS Safety Report 5676187-X (Version None)
Quarter: 2008Q1

REPORT INFORMATION
  Report Type: 
  Country: None (occurrence: None)
  Receive Date: 20080321
  Receipt Date: 20080310
  Transmission Date: 20080703
  Serious: Yes (Hospitalization)
  Sender: FDA-Public Use
  Company Number: US-AMGEN-STX269071

PATIENT
  Sex: Female

DRUGS (1)
  1. ENBREL [Suspect]
     Indication: RHEUMATOID ARTHRITIS
     Dates: start: 20060101

REACTIONS (5)
  - JAW OPERATION [None]
  - MUSCULOSKELETAL STIFFNESS [None]
  - NECK PAIN [None]
  - THINKING ABNORMAL [None]
  - TOOTH ABSCESS [None]
